FAERS Safety Report 13070395 (Version 1)
Quarter: 2016Q4

REPORT INFORMATION
  Report Type: Other
  Country: GB (occurrence: NL)
  Receive Date: 20161228
  Receipt Date: 20161228
  Transmission Date: 20170207
  Serious: Yes (Life-Threatening, Hospitalization, Other)
  Sender: FDA-Public Use
  Company Number: NL-INTERNATIONAL MEDICATION SYSTEMS, LIMITED-1061353

PATIENT
  Age: 45 Year
  Sex: Female

DRUGS (1)
  1. EPINEPHRINE. [Suspect]
     Active Substance: EPINEPHRINE

REACTIONS (4)
  - Acidosis [Unknown]
  - Hypokalaemia [Unknown]
  - Cardiac arrest [Unknown]
  - Ventricular fibrillation [Unknown]
